FAERS Safety Report 20406445 (Version 1)
Quarter: 2022Q1

REPORT INFORMATION
  Report Type: Spontaneous
  Country: US (occurrence: US)
  Receive Date: 20220131
  Receipt Date: 20220131
  Transmission Date: 20220423
  Serious: No
  Sender: FDA-Public Use
  Company Number: US-SA-SAC20220125000506

PATIENT
  Age: 61 Year
  Sex: Male

DRUGS (4)
  1. DUPIXENT [Suspect]
     Active Substance: DUPILUMAB
     Indication: Dermatitis atopic
     Dosage: QD WEEKS
     Route: 058
     Dates: start: 20211026
  2. METHOTREXATE SODIUM [Concomitant]
     Active Substance: METHOTREXATE SODIUM
     Indication: Psoriasis
     Dosage: 2.5 MG,
     Route: 048
  3. OTEZLA [Concomitant]
     Active Substance: APREMILAST
     Indication: Dermatitis
     Dosage: 30MG
     Route: 048
     Dates: end: 20211213
  4. PREDNISONE [Concomitant]
     Active Substance: PREDNISONE
     Indication: Intertrigo
     Dosage: 40MGX5D, 30MGX5D, 20MGX5D,10MGX5D FUP IN 2 WKS
     Route: 048
     Dates: start: 20211209

REACTIONS (2)
  - Penile rash [Unknown]
  - Condition aggravated [Unknown]

NARRATIVE: CASE EVENT DATE: 20211208
